FAERS Safety Report 6223652-2 (Version None)
Quarter: 2009Q2

REPORT INFORMATION
  Report Type: 
  Country: None (occurrence: None)
  Receive Date: 20090611
  Receipt Date: 20090309
  Transmission Date: 20091009
  Serious: No
  Sender: FDA-Public Use
  Company Number: US-ABBOTT-08P-163-0472270-00

PATIENT
  Sex: Female
  Weight: 69.008 kg

DRUGS (5)
  1. HUMIRA [Suspect]
     Indication: RHEUMATOID ARTHRITIS
     Route: 058
     Dates: start: 20061201, end: 20080601
  2. HUMIRA [Suspect]
     Route: 058
     Dates: start: 20080601
  3. METHOTREXATE [Suspect]
     Indication: RHEUMATOID ARTHRITIS
  4. ADVIL [Concomitant]
     Indication: PAIN
     Route: 048
  5. MULTI-VITAMIN [Concomitant]
     Indication: DRUG USE FOR UNKNOWN INDICATION
     Route: 048

REACTIONS (9)
  - ABDOMINAL DISCOMFORT [None]
  - ALOPECIA [None]
  - ARTHRALGIA [None]
  - DRUG INEFFECTIVE [None]
  - FATIGUE [None]
  - HOT FLUSH [None]
  - NAUSEA [None]
  - NIGHT SWEATS [None]
  - PAIN IN JAW [None]
